FAERS Safety Report 24642419 (Version 2)
Quarter: 2024Q4

REPORT INFORMATION
  Report Type: Spontaneous
  Country: US (occurrence: US)
  Receive Date: 20241120
  Receipt Date: 20241211
  Transmission Date: 20250115
  Serious: No
  Sender: PFIZER
  Company Number: US-PFIZER INC-202400302236

PATIENT
  Age: 65 Year
  Sex: Female

DRUGS (2)
  1. INLYTA [Suspect]
     Active Substance: AXITINIB
     Indication: Metastases to lymph nodes
     Dosage: TAKE 1 TABLET (5 MG TOTAL) BY MOUTH TWICE DAILY/ (BID)
     Route: 048
  2. INLYTA [Suspect]
     Active Substance: AXITINIB
     Indication: Renal cancer

REACTIONS (1)
  - Thyroid disorder [Unknown]
